FAERS Safety Report 23695608 (Version 2)
Quarter: 2024Q2

REPORT INFORMATION
  Report Type: Spontaneous
  Country: US (occurrence: US)
  Receive Date: 20240402
  Receipt Date: 20240410
  Transmission Date: 20240716
  Serious: No
  Sender: FDA-Public Use
  Company Number: US-GSK-US2024039860

PATIENT
  Sex: Female

DRUGS (6)
  1. NUCALA [Suspect]
     Active Substance: MEPOLIZUMAB
     Indication: Asthma
     Dosage: 100 MG/ML, Q4W
     Route: 058
  2. ALBUTEROL [Concomitant]
     Active Substance: ALBUTEROL
     Indication: Dyspnoea
     Dosage: UNK, QID, 2.5 AND 3 ML, AS NEEDED
  3. PREDNISONE [Concomitant]
     Active Substance: PREDNISONE
     Indication: Dyspnoea
     Dosage: UNK, 2 TABLETS AT 20 MG/EACH, FOR 5
     Dates: start: 20240305, end: 20240309
  4. PREDNISONE [Concomitant]
     Active Substance: PREDNISONE
     Dosage: UNK, 4 TABLETS PER DAY, AT 10 MG/EACH, FOR 7
     Dates: start: 20240314, end: 20240321
  5. DOXYCYCLINE [Concomitant]
     Active Substance: DOXYCYCLINE
     Indication: Infection
     Dosage: UNK
     Dates: start: 202403, end: 202403
  6. SEREVENT DISKUS [Concomitant]
     Active Substance: SALMETEROL XINAFOATE
     Indication: Dyspnoea
     Dosage: UNK
     Dates: start: 2023

REACTIONS (2)
  - Illness [Unknown]
  - Product dose omission issue [Unknown]
